FAERS Safety Report 23047001 (Version 1)
Quarter: 2023Q4

REPORT INFORMATION
  Report Type: Spontaneous
  Country: US (occurrence: US)
  Receive Date: 20231009
  Receipt Date: 20231009
  Transmission Date: 20240110
  Serious: No
  Sender: FDA-Public Use
  Company Number: US-BoehringerIngelheim-2023-BI-265625

PATIENT

DRUGS (1)
  1. JARDIANCE [Suspect]
     Active Substance: EMPAGLIFLOZIN
     Indication: Blood glucose increased

REACTIONS (5)
  - Infection [Unknown]
  - Diarrhoea [Unknown]
  - Migraine [Unknown]
  - Dizziness [Unknown]
  - Dyspnoea [Unknown]
